FAERS Safety Report 17431284 (Version 1)
Quarter: 2020Q1

REPORT INFORMATION
  Report Type: Spontaneous
  Country: US (occurrence: US)
  Receive Date: 20200218
  Receipt Date: 20200218
  Transmission Date: 20200409
  Serious: Yes (Hospitalization, Other)
  Sender: FDA-Public Use
  Company Number: US-AMGEN-USASP2020025682

PATIENT
  Age: 60 Year
  Sex: Male

DRUGS (2)
  1. KYPROLIS [Suspect]
     Active Substance: CARFILZOMIB
     Indication: PLASMA CELL MYELOMA
     Dosage: 20 MILLIGRAM/SQ. METER (CYCLE ONE, DAYS 1 AND 2)
     Route: 065
     Dates: start: 2020, end: 2020
  2. KYPROLIS [Suspect]
     Active Substance: CARFILZOMIB
     Dosage: 27 MILLIGRAM/SQ. METER (MAINTENANCE)
     Route: 065
     Dates: start: 2020

REACTIONS (1)
  - Tumour lysis syndrome [Recovered/Resolved]

NARRATIVE: CASE EVENT DATE: 2020
